FAERS Safety Report 5586363-2 (Version None)
Quarter: 2008Q1

REPORT INFORMATION
  Report Type: 
  Country: None (occurrence: None)
  Receive Date: 20080110
  Receipt Date: 20080107
  Transmission Date: 20080703
  Serious: Yes (Other)
  Sender: FDA-Public Use
  Company Number: ES-JNJFOC-20071202002

PATIENT
  Age: 38 Year
  Sex: Male

DRUGS (3)
  1. RISPERIDONE [Suspect]
     Indication: DRUG USE FOR UNKNOWN INDICATION
     Route: 048
  2. IDALPREM [Concomitant]
     Indication: ANXIETY
     Route: 048
  3. NOCTAMID [Concomitant]
     Indication: SLEEP DISORDER
     Route: 048

REACTIONS (2)
  - DRUG INEFFECTIVE [None]
  - HALLUCINATION [None]
